FAERS Safety Report 24447050 (Version 1)
Quarter: 2024Q4

REPORT INFORMATION
  Report Type: Spontaneous
  Country: GB (occurrence: GB)
  Receive Date: 20241016
  Receipt Date: 20241016
  Transmission Date: 20250114
  Serious: Yes (Other)
  Sender: ELI LILLY AND COMPANY
  Company Number: GB-MHRA-TPP2324731C8851053YC1727963031409

PATIENT
  Age: 67 Year
  Sex: Female
  Weight: 81 kg

DRUGS (18)
  1. MOUNJARO [Suspect]
     Active Substance: TIRZEPATIDE
     Indication: Dermatitis allergic
     Dosage: 5 MG, WEEKLY (1/W)
     Route: 058
     Dates: start: 20240628, end: 20241003
  2. BETAMETHASONE VALERATE [Concomitant]
     Active Substance: BETAMETHASONE VALERATE
     Indication: Ill-defined disorder
     Dosage: UNK UNK, BID
     Route: 065
     Dates: start: 20240917
  3. CLOTRIMAZOLE [Concomitant]
     Active Substance: CLOTRIMAZOLE
     Indication: Ill-defined disorder
     Dosage: UNK UNK, OTHER (APPLY 2-3 TIMES/DAY)
     Dates: start: 20240917, end: 20240918
  4. BETAHISTINE [Concomitant]
     Active Substance: BETAHISTINE
     Indication: Ill-defined disorder
     Dosage: UNK UNK, OTHER(TAKE ONE 3 TIMES/DAY)
     Route: 065
     Dates: start: 20240809, end: 20240906
  5. BUTYLSCOPOLAMINE BROMIDE [Concomitant]
     Active Substance: BUTYLSCOPOLAMINE BROMIDE
     Indication: Ill-defined disorder
     Dosage: UNK UNK, UNKNOWN (TWO BD)
     Route: 065
     Dates: start: 20230117
  6. AMLODIPINE [Concomitant]
     Active Substance: AMLODIPINE BESYLATE
     Indication: Ill-defined disorder
     Dosage: UNK UNK, DAILY
     Route: 065
     Dates: start: 20231004
  7. AVEENO [Concomitant]
     Active Substance: DIMETHICONE\HOMOSALATE\OCTINOXATE\OCTISALATE\TITANIUM DIOXIDE
     Indication: Ill-defined disorder
     Dosage: UNK UNK, UNKNOWN
     Route: 065
     Dates: start: 20231004
  8. AZITHROMYCIN [Concomitant]
     Active Substance: AZITHROMYCIN
     Indication: Ill-defined disorder
     Dosage: UNK UNK, DAILY
     Route: 065
     Dates: start: 20231004
  9. BECLOMETHASONE DIPROPIONATE [Concomitant]
     Active Substance: BECLOMETHASONE DIPROPIONATE
     Indication: Ill-defined disorder
     Dosage: UNK UNK, BID
     Route: 065
     Dates: start: 20231004
  10. CETIRIZINE [Concomitant]
     Active Substance: CETIRIZINE HYDROCHLORIDE
     Indication: Ill-defined disorder
     Dosage: UNK UNK, DAILY
     Route: 065
     Dates: start: 20231004
  11. BECLOMETHASONE\FORMOTEROL [Concomitant]
     Active Substance: BECLOMETHASONE\FORMOTEROL
     Indication: Ill-defined disorder
     Dosage: UNK UNK, BID
     Route: 065
     Dates: start: 20231004
  12. LANSOPRAZOLE [Concomitant]
     Active Substance: LANSOPRAZOLE
     Indication: Ill-defined disorder
     Dosage: UNK UNK, DAILY
     Route: 065
     Dates: start: 20231004
  13. MINERAL OIL [Concomitant]
     Active Substance: MINERAL OIL
     Indication: Ill-defined disorder
     Dosage: UNK UNK, UNKNOWN
     Route: 065
     Dates: start: 20231004
  14. MONTELUKAST [Concomitant]
     Active Substance: MONTELUKAST
     Indication: Ill-defined disorder
     Dosage: UNK UNK, DAILY
     Route: 065
     Dates: start: 20231004
  15. ALBUTEROL [Concomitant]
     Active Substance: ALBUTEROL
     Indication: Ill-defined disorder
     Dosage: UNK UNK, UNKNOWN
     Route: 065
     Dates: start: 20231004
  16. SPIRIVA [Concomitant]
     Active Substance: TIOTROPIUM BROMIDE MONOHYDRATE
     Indication: Ill-defined disorder
     Dosage: UNK UNK, DAILY
     Route: 065
     Dates: start: 20231004
  17. PREGABALIN [Concomitant]
     Active Substance: PREGABALIN
     Indication: Ill-defined disorder
     Dosage: UNK UNK, TID
     Route: 065
     Dates: start: 20231103
  18. TRIMETHOPRIM [Concomitant]
     Active Substance: TRIMETHOPRIM
     Indication: Ill-defined disorder
     Dosage: UNK UNK, DAILY
     Route: 065
     Dates: start: 20240125

REACTIONS (5)
  - Injection site hypersensitivity [Recovering/Resolving]
  - Off label use [Unknown]
  - Injection site rash [Unknown]
  - Injection site swelling [Unknown]
  - Injection site erythema [Unknown]

NARRATIVE: CASE EVENT DATE: 20240731
